FAERS Safety Report 16845802 (Version 3)
Quarter: 2019Q4

REPORT INFORMATION
  Report Type: Spontaneous
  Country: AT (occurrence: AT)
  Receive Date: 20190924
  Receipt Date: 20191114
  Transmission Date: 20200122
  Serious: Yes (Life-Threatening, Hospitalization)
  Sender: FDA-Public Use
  Company Number: PHHY2019AT220627

PATIENT
  Age: 16 Year
  Sex: Male
  Weight: 79 kg

DRUGS (1)
  1. EBETREXATE [Suspect]
     Active Substance: METHOTREXATE SODIUM
     Indication: PRECURSOR T-LYMPHOBLASTIC LYMPHOMA/LEUKAEMIA
     Dosage: 5 MG/M2, Q24H
     Route: 042
     Dates: start: 20190830, end: 20190831

REACTIONS (8)
  - Toxicity to various agents [Recovered/Resolved]
  - Renal failure [Recovered/Resolved]
  - Vomiting [Recovered/Resolved]
  - Product quality issue [Unknown]
  - Guillain-Barre syndrome [Not Recovered/Not Resolved]
  - Nausea [Recovered/Resolved]
  - Blood creatinine increased [Recovered/Resolved]
  - Retching [Recovered/Resolved]

NARRATIVE: CASE EVENT DATE: 20190831
